FAERS Safety Report 13422879 (Version 1)
Quarter: 2017Q2

REPORT INFORMATION
  Report Type: Spontaneous
  Country: US (occurrence: US)
  Receive Date: 20170410
  Receipt Date: 20170410
  Transmission Date: 20170830
  Serious: No
  Sender: FDA-Public Use
  Company Number: None

PATIENT
  Age: 63 Year
  Sex: Male

DRUGS (11)
  1. GILENYA [Suspect]
     Active Substance: FINGOLIMOD HYDROCHLORIDE
     Indication: MULTIPLE SCLEROSIS
     Route: 048
     Dates: start: 20170213
  2. COQ10 [Concomitant]
     Active Substance: UBIDECARENONE
  3. MAGNESIUM [Concomitant]
     Active Substance: MAGNESIUM
  4. CLONAZEPAM. [Concomitant]
     Active Substance: CLONAZEPAM
  5. BACLOFEN. [Concomitant]
     Active Substance: BACLOFEN
  6. MULTVITAMIN [Concomitant]
  7. PHOSPHATE [Concomitant]
     Active Substance: UNSPECIFIED INGREDIENT
  8. VITAMIN D3 [Concomitant]
     Active Substance: CHOLECALCIFEROL
  9. ASPIRIN. [Concomitant]
     Active Substance: ASPIRIN
  10. SIMVASTATIN. [Concomitant]
     Active Substance: SIMVASTATIN
  11. TERAZOSIN [Concomitant]
     Active Substance: TERAZOSIN\TERAZOSIN HYDROCHLORIDE

REACTIONS (4)
  - Fatigue [None]
  - Gastrointestinal disorder [None]
  - Bladder disorder [None]
  - Fall [None]
